FAERS Safety Report 5915799-2 (Version None)
Quarter: 2008Q4

REPORT INFORMATION
  Report Type: 
  Country: None (occurrence: None)
  Receive Date: 20081010
  Receipt Date: 20081001
  Transmission Date: 20090506
  Serious: Yes (Other)
  Sender: FDA-Public Use
  Company Number: US-PFIZER INC-2008067684

PATIENT
  Sex: Female
  Weight: 197.3 kg

DRUGS (9)
  1. NEURONTIN [Suspect]
     Indication: NEURALGIA
     Route: 048
     Dates: start: 20010101
  2. LYRICA [Suspect]
     Indication: FIBROMYALGIA
     Route: 048
     Dates: start: 20080301, end: 20080615
  3. DIOVAN HCT [Concomitant]
     Dosage: TEXT:160/12.5 MG
     Route: 048
  4. TOPROL-XL [Concomitant]
     Route: 048
  5. BENTYL [Concomitant]
     Route: 048
  6. EFFEXOR [Concomitant]
     Route: 048
  7. ZANAFLEX [Concomitant]
     Route: 048
  8. XANAX [Concomitant]
  9. CHOLESTYRAMINE [Concomitant]

REACTIONS (5)
  - FATIGUE [None]
  - FIBROMYALGIA [None]
  - HYPERSOMNIA [None]
  - VISION BLURRED [None]
  - WEIGHT INCREASED [None]
